FAERS Safety Report 20633468 (Version 1)
Quarter: 2022Q1

REPORT INFORMATION
  Report Type: Spontaneous
  Country: CA (occurrence: CA)
  Receive Date: 20220324
  Receipt Date: 20220324
  Transmission Date: 20220424
  Serious: Yes (Other)
  Sender: FDA-Public Use
  Company Number: CA-TAKEDA-2022TUS018456

PATIENT
  Age: 34 Year
  Sex: Female

DRUGS (1)
  1. GAMMAGARD LIQUID [Suspect]
     Active Substance: HUMAN IMMUNOGLOBULIN G
     Indication: Product used for unknown indication
     Dosage: 20 GRAM
     Route: 065

REACTIONS (7)
  - Anaphylactic reaction [Unknown]
  - Anaphylactoid reaction [Unknown]
  - Infusion site rash [Unknown]
  - Infusion site urticaria [Unknown]
  - Lip swelling [Unknown]
  - Throat tightness [Unknown]
  - Urticaria [Unknown]
